FAERS Safety Report 15624096 (Version 1)
Quarter: 2018Q4

REPORT INFORMATION
  Report Type: Report from Study
  Country: US (occurrence: US)
  Receive Date: 20181116
  Receipt Date: 20181116
  Transmission Date: 20190205
  Serious: Yes (Death)
  Sender: FDA-Public Use
  Company Number: US-CONCORDIA PHARMACEUTICALS INC.-GSH201811-003900

PATIENT
  Age: 67 Year
  Sex: Male

DRUGS (1)
  1. DIGOXIN. [Suspect]
     Active Substance: DIGOXIN
     Indication: AMYLOIDOSIS

REACTIONS (4)
  - Sinus bradycardia [Fatal]
  - Respiratory arrest [Fatal]
  - Cardiac arrest [Fatal]
  - Toxicity to various agents [Fatal]
